FAERS Safety Report 8552307-4 (Version None)
Quarter: 2012Q3

REPORT INFORMATION
  Report Type: 
  Country: None (occurrence: None)
  Receive Date: 20120718
  Receipt Date: 20120702
  Transmission Date: 20120928
  Serious: Yes (Other)
  Sender: FDA-Public Use
  Company Number: TCI2012A03088

PATIENT

DRUGS (3)
  1. OLMESARTAN MEDOXOMIL [Suspect]
     Dosage: 10 MG (10 MG, 1 D)
     Route: 048
  2. ZOLPIDEM TARTRATE [Concomitant]
  3. ROZEREM [Suspect]
     Indication: INSOMNIA
     Dosage: 8 MG (8 MG, 1 IN 1 D)
     Route: 048
     Dates: start: 20120526

REACTIONS (2)
  - ANAEMIA [None]
  - RHABDOMYOLYSIS [None]
